FAERS Safety Report 9259922 (Version 4)
Quarter: 2024Q4

REPORT INFORMATION
  Report Type: Report from Study
  Country: ES (occurrence: ES)
  Receive Date: 20130429
  Receipt Date: 20241128
  Transmission Date: 20250114
  Serious: Yes (Other)
  Sender: ROCHE
  Company Number: ES-ROCHE-1218978

PATIENT
  Age: 45 Year
  Sex: Female

DRUGS (1)
  1. PERTUZUMAB [Suspect]
     Active Substance: PERTUZUMAB
     Indication: Breast cancer
     Route: 050
     Dates: start: 20121122

REACTIONS (2)
  - Disease progression [Unknown]
  - Ejection fraction decreased [Not Recovered/Not Resolved]

NARRATIVE: CASE EVENT DATE: 20130101
